FAERS Safety Report 14877184 (Version 1)
Quarter: 2018Q2

REPORT INFORMATION
  Report Type: Spontaneous
  Country: US (occurrence: US)
  Receive Date: 20180424
  Receipt Date: 20180424
  Transmission Date: 20180711
  Serious: Yes (Other)
  Sender: FDA-Public Use
  Company Number: None

PATIENT
  Age: 3 Year
  Sex: Male
  Weight: 13.3 kg

DRUGS (1)
  1. DINUTUXIMAB [Suspect]
     Active Substance: DINUTUXIMAB
     Indication: NEUROBLASTOMA
     Dosage: 17.5 MG/M2 MILLIGRAM(S)/SQ. METER 10 ML/HR INFUSION INTRAVENOUS?
     Route: 042
     Dates: start: 20180122

REACTIONS (4)
  - Rash [None]
  - Respiratory distress [None]
  - Cough [None]
  - Angioedema [None]

NARRATIVE: CASE EVENT DATE: 20180122
